FAERS Safety Report 23994747 (Version 1)
Quarter: 2024Q2

REPORT INFORMATION
  Report Type: Spontaneous
  Country: US (occurrence: None)
  Receive Date: 20240619
  Receipt Date: 20240619
  Transmission Date: 20240716
  Serious: Yes (Hospitalization)
  Sender: FDA-Public Use
  Company Number: None

PATIENT
  Age: 74 Year
  Sex: Female

DRUGS (1)
  1. CAPECITABINE [Suspect]
     Active Substance: CAPECITABINE
     Dates: start: 20240606, end: 20240617

REACTIONS (5)
  - Palpitations [None]
  - Dyspnoea [None]
  - Panic attack [None]
  - Myocardial infarction [None]
  - Rash [None]

NARRATIVE: CASE EVENT DATE: 20240617
